FAERS Safety Report 7035879-0 (Version None)
Quarter: 2010Q4

REPORT INFORMATION
  Report Type: 
  Country: None (occurrence: None)
  Receive Date: 20101007
  Receipt Date: 20101007
  Transmission Date: 20110411
  Serious: Yes (Other)
  Sender: FDA-Public Use
  Company Number: None

PATIENT
  Age: 48 Year
  Sex: Female
  Weight: 83.9154 kg

DRUGS (2)
  1. OXYCONTIN [Suspect]
     Indication: ARNOLD-CHIARI MALFORMATION
     Dosage: 40 MG TWICE DAILY PO
     Route: 048
     Dates: start: 20101001, end: 20101004
  2. OXYCONTIN [Suspect]
     Indication: SPINAL COLUMN STENOSIS
     Dosage: 40 MG TWICE DAILY PO
     Route: 048
     Dates: start: 20101001, end: 20101004

REACTIONS (5)
  - CONSTIPATION [None]
  - DIZZINESS [None]
  - DRUG EFFECT DECREASED [None]
  - HYPERHIDROSIS [None]
  - PRODUCT FORMULATION ISSUE [None]
